FAERS Safety Report 4335154-9 (Version None)
Quarter: 2004Q1

REPORT INFORMATION
  Report Type: 
  Country: None (occurrence: None)
  Receive Date: 20040329
  Receipt Date: 20031205
  Transmission Date: 20041129
  Serious: No
  Sender: FDA-Public Use
  Company Number: 03P-163-0244153-00

PATIENT
  Age: 73 Year
  Sex: Female
  Weight: 64.8644 kg

DRUGS (6)
  1. HUMIRA [Suspect]
     Indication: RHEUMATOID ARTHRITIS
     Dosage: 40 MG, 1 IN 2 WK, SUBCUTANEOUS
     Route: 058
     Dates: start: 20030929
  2. METHOTREXATE [Concomitant]
  3. CELECOXIB [Concomitant]
  4. PREDNISONE [Concomitant]
  5. FOLIC ACID [Concomitant]
  6. IRON [Concomitant]

REACTIONS (11)
  - BALANCE DISORDER [None]
  - FALL [None]
  - GAIT DISTURBANCE [None]
  - HAIR TEXTURE ABNORMAL [None]
  - INCREASED TENDENCY TO BRUISE [None]
  - NAIL DISORDER [None]
  - NASAL CONGESTION [None]
  - ONYCHORRHEXIS [None]
  - PAIN IN EXTREMITY [None]
  - RASH MACULAR [None]
  - THROAT IRRITATION [None]
